FAERS Safety Report 4314511-0 (Version None)
Quarter: 2004Q1

REPORT INFORMATION
  Report Type: 
  Country: None (occurrence: None)
  Receive Date: 20040308
  Receipt Date: 20040223
  Transmission Date: 20041129
  Serious: Yes (Death)
  Sender: FDA-Public Use
  Company Number: USA-2003-0011656

PATIENT
  Age: 29 Year
  Sex: Male
  Weight: 83.4 kg

DRUGS (8)
  1. OXYCODONE HCL [Suspect]
  2. HYDROCODONE BITARTRATE [Suspect]
  3. IBUPROFEN [Suspect]
  4. CAFFEINE (CAFFEINE) [Suspect]
  5. NICOTINE [Suspect]
  6. ETHANOL (ETHANOL) [Suspect]
  7. PHENYTOIN [Concomitant]
  8. TETRAHYDROCANNABINOL (TETRAHYDROCANNABINOL) [Suspect]

REACTIONS (8)
  - ALCOHOL USE [None]
  - COMPLETED SUICIDE [None]
  - DEPRESSION [None]
  - GUN SHOT WOUND [None]
  - HAEMORRHAGE INTRACRANIAL [None]
  - HEAD INJURY [None]
  - SKULL FRACTURE [None]
  - TRAUMATIC BRAIN INJURY [None]
